FAERS Safety Report 14262021 (Version 1)
Quarter: 2017Q4

REPORT INFORMATION
  Report Type: Spontaneous
  Country: BE (occurrence: BE)
  Receive Date: 20171208
  Receipt Date: 20171208
  Transmission Date: 20180321
  Serious: Yes (Death, Hospitalization)
  Sender: FDA-Public Use
  Company Number: BE-STRIDES ARCOLAB LIMITED-2017SP014480

PATIENT

DRUGS (6)
  1. BUSULFAN. [Suspect]
     Active Substance: BUSULFAN
     Indication: STEM CELL TRANSPLANT
     Dosage: UNK
     Route: 065
  2. CYCLOPHOSPHAMIDE. [Suspect]
     Active Substance: CYCLOPHOSPHAMIDE
     Indication: STEM CELL TRANSPLANT
     Dosage: UNK
     Route: 065
  3. MYCOPHENOLATE MOFETIL. [Suspect]
     Active Substance: MYCOPHENOLATE MOFETIL
     Indication: PROPHYLAXIS AGAINST GRAFT VERSUS HOST DISEASE
     Dosage: UNK
     Route: 065
  4. ANTITHYMOCYTE IMMUNOGLOBULIN [Suspect]
     Active Substance: THYMOCYTE IMMUNE GLOBULIN NOS
     Indication: STEM CELL TRANSPLANT
     Dosage: UNK
     Route: 065
  5. TACROLIMUS. [Suspect]
     Active Substance: TACROLIMUS
     Indication: PROPHYLAXIS AGAINST GRAFT VERSUS HOST DISEASE
     Dosage: UNK
     Route: 065
  6. FLUDARABINE [Suspect]
     Active Substance: FLUDARABINE PHOSPHATE
     Indication: STEM CELL TRANSPLANT
     Dosage: UNK
     Route: 065

REACTIONS (19)
  - Staphylococcal sepsis [Unknown]
  - Pyrexia [Unknown]
  - Vomiting [Unknown]
  - Pain [Unknown]
  - Oedema [Unknown]
  - Hepatitis [Fatal]
  - Cytomegalovirus infection [Unknown]
  - Decreased appetite [Unknown]
  - Weight decreased [Unknown]
  - Adenovirus infection [Unknown]
  - Off label use [Unknown]
  - Venoocclusive liver disease [Unknown]
  - Oral candidiasis [Unknown]
  - Nausea [Unknown]
  - Ascites [Unknown]
  - Hepatic failure [Fatal]
  - Hepatic necrosis [Unknown]
  - Hepatomegaly [Unknown]
  - Herpes virus infection [Unknown]
